FAERS Safety Report 13123131 (Version 1)
Quarter: 2017Q1

REPORT INFORMATION
  Report Type: Spontaneous
  Country: IL (occurrence: IL)
  Receive Date: 20170117
  Receipt Date: 20170117
  Transmission Date: 20170428
  Serious: Yes (Hospitalization, Other)
  Sender: FDA-Public Use
  Company Number: IL-SA-2016SA228042

PATIENT
  Sex: Male

DRUGS (1)
  1. CAPRELSA [Suspect]
     Active Substance: VANDETANIB
     Indication: MEDULLARY THYROID CANCER
     Route: 048
     Dates: start: 20160904, end: 201612

REACTIONS (8)
  - Dysstasia [Recovering/Resolving]
  - Disease progression [Unknown]
  - Diarrhoea [Unknown]
  - Nausea [Unknown]
  - Fatigue [Recovering/Resolving]
  - Pain [Unknown]
  - Epistaxis [Recovered/Resolved]
  - Blood calcitonin increased [Unknown]

NARRATIVE: CASE EVENT DATE: 20161208
